FAERS Safety Report 23471849 (Version 2)
Quarter: 2024Q1

REPORT INFORMATION
  Report Type: Report from Study
  Country: US (occurrence: US)
  Receive Date: 20240202
  Receipt Date: 20240229
  Transmission Date: 20240410
  Serious: No
  Sender: FDA-Public Use
  Company Number: US-SA-SAC20240129000707

PATIENT
  Age: 53 Year
  Sex: Male

DRUGS (2)
  1. DUPILUMAB [Suspect]
     Active Substance: DUPILUMAB
     Indication: Dermatitis atopic
     Dosage: 600 MG, 1X
     Route: 058
     Dates: start: 20230918, end: 20230918
  2. DUPILUMAB [Suspect]
     Active Substance: DUPILUMAB
     Dosage: 300 MG, QOW
     Route: 058
     Dates: start: 2023

REACTIONS (4)
  - Skin discolouration [Unknown]
  - Dry skin [Unknown]
  - Pruritus [Unknown]
  - Rash [Unknown]

NARRATIVE: CASE EVENT DATE: 20240101
